FAERS Safety Report 25566639 (Version 1)
Quarter: 2025Q3

REPORT INFORMATION
  Report Type: Spontaneous
  Country: US (occurrence: US)
  Receive Date: 20250716
  Receipt Date: 20250716
  Transmission Date: 20251020
  Serious: No
  Sender: BOTANIX PHARMACEUTICALS
  Company Number: US-BOTANIX PHARMACEUTICALS-2025BOT00110

PATIENT
  Sex: Male

DRUGS (2)
  1. SOFDRA [Suspect]
     Active Substance: SOFPIRONIUM BROMIDE
     Dosage: APPLY ONE PUMP TO EACH UNDERARM ONCE DAILY AT BEDTIME
     Route: 061
  2. QBREXZA [Concomitant]
     Active Substance: GLYCOPYRRONIUM TOSYLATE

REACTIONS (2)
  - Dry mouth [Recovering/Resolving]
  - Vision blurred [Recovering/Resolving]
